FAERS Safety Report 6210714-9 (Version None)
Quarter: 2009Q2

REPORT INFORMATION
  Report Type: 
  Country: None (occurrence: None)
  Receive Date: 20090528
  Receipt Date: 20090528
  Transmission Date: 20091009
  Serious: Yes (Other)
  Sender: FDA-Public Use
  Company Number: None

PATIENT
  Age: 62 Year
  Sex: Male
  Weight: 103.4201 kg

DRUGS (3)
  1. LEVAQUIN [Suspect]
     Indication: COUGH
     Dosage: 750 MG 1 DAILY 7 DAYS PO
     Route: 048
     Dates: start: 20090518, end: 20090522
  2. LEVAQUIN [Suspect]
     Indication: NASOPHARYNGITIS
     Dosage: 750 MG 1 DAILY 7 DAYS PO
     Route: 048
     Dates: start: 20090518, end: 20090522
  3. LEVAQUIN [Suspect]
     Indication: UPPER RESPIRATORY TRACT INFECTION
     Dosage: 750 MG 1 DAILY 7 DAYS PO
     Route: 048
     Dates: start: 20090518, end: 20090522

REACTIONS (9)
  - ARTHRALGIA [None]
  - ASTHENIA [None]
  - CONFUSIONAL STATE [None]
  - DISTURBANCE IN ATTENTION [None]
  - DIZZINESS [None]
  - FATIGUE [None]
  - HEADACHE [None]
  - MUSCLE STRAIN [None]
  - PAIN IN EXTREMITY [None]
